FAERS Safety Report 8220439-6 (Version None)
Quarter: 2012Q1

REPORT INFORMATION
  Report Type: 
  Country: None (occurrence: None)
  Receive Date: 20120319
  Receipt Date: 20120104
  Transmission Date: 20120608
  Serious: Yes (Other)
  Sender: FDA-Public Use
  Company Number: PHHY2012KR020402

PATIENT
  Sex: Male
  Weight: 62 kg

DRUGS (1)
  1. EXJADE [Suspect]
     Indication: MYELODYSPLASTIC SYNDROME
     Dosage: 750 MG, UNK
     Route: 048
     Dates: start: 20100930

REACTIONS (1)
  - HAEMOGLOBIN DECREASED [None]
